FAERS Safety Report 19297555 (Version 2)
Quarter: 2021Q2

REPORT INFORMATION
  Report Type: Spontaneous
  Country: JP (occurrence: JP)
  Receive Date: 20210524
  Receipt Date: 20210614
  Transmission Date: 20210717
  Serious: Yes (Death, Other)
  Sender: FDA-Public Use
  Company Number: JP-CELLTRION INC.-2021JP006794

PATIENT

DRUGS (8)
  1. TRASTUZUMAB (UNKNOWN) [Suspect]
     Active Substance: TRASTUZUMAB
     Indication: HER2 POSITIVE GASTRIC CANCER
     Dosage: 20 COURSES OF CHEMOTHERAPY? CAPECITABINE  + CISPLATIN + TRASTUZUMAB (BEFORE OPERATION)
  2. TRASTUZUMAB (UNKNOWN) [Suspect]
     Active Substance: TRASTUZUMAB
     Dosage: 10 COURSES OF CHEMOTHERAPY? CAPECITABINE + TRASTUZUMAB  (AFTER SURGERY)
  3. IRINOTECAN [Suspect]
     Active Substance: IRINOTECAN
     Indication: HER2 POSITIVE GASTRIC CANCER
  4. CAPECITABINE. [Suspect]
     Active Substance: CAPECITABINE
     Indication: HER2 POSITIVE GASTRIC CANCER
  5. CISPLATIN. [Suspect]
     Active Substance: CISPLATIN
     Indication: HER2 POSITIVE GASTRIC CANCER
  6. RAMUCIRUMAB [Suspect]
     Active Substance: RAMUCIRUMAB
     Indication: HER2 POSITIVE GASTRIC CANCER
  7. PACLITAXEL. [Suspect]
     Active Substance: PACLITAXEL
     Indication: HER2 POSITIVE GASTRIC CANCER
  8. NIVOLUMAB [Suspect]
     Active Substance: NIVOLUMAB
     Indication: HER2 POSITIVE GASTRIC CANCER

REACTIONS (6)
  - Pancreatic fistula [Unknown]
  - Neoplasm recurrence [Unknown]
  - Metastases to peritoneum [Unknown]
  - Vomiting [Unknown]
  - Death [Fatal]
  - Decreased appetite [Unknown]
